FAERS Safety Report 19982789 (Version 1)
Quarter: 2021Q4

REPORT INFORMATION
  Report Type: Spontaneous
  Country: FR (occurrence: FR)
  Receive Date: 20211021
  Receipt Date: 20211021
  Transmission Date: 20220303
  Serious: Yes (Other)
  Sender: FDA-Public Use
  Company Number: FR-ABBVIE-21K-056-4126087-00

PATIENT
  Age: 38 Year
  Sex: Male

DRUGS (3)
  1. VALPROATE SODIUM [Interacting]
     Active Substance: VALPROATE SODIUM
     Indication: Schizophrenia
     Route: 065
     Dates: start: 2018
  2. CLOZAPINE [Interacting]
     Active Substance: CLOZAPINE
     Indication: Schizophrenia
     Route: 065
     Dates: start: 2016
  3. CLOZAPINE [Interacting]
     Active Substance: CLOZAPINE
     Route: 065
     Dates: start: 2018

REACTIONS (3)
  - Agranulocytosis [Recovered/Resolved]
  - Neutropenia [Unknown]
  - Drug interaction [Recovered/Resolved]

NARRATIVE: CASE EVENT DATE: 20180101
